FAERS Safety Report 8478365-3 (Version None)
Quarter: 2012Q2

REPORT INFORMATION
  Report Type: 
  Country: None (occurrence: None)
  Receive Date: 20120629
  Receipt Date: 20120626
  Transmission Date: 20120825
  Serious: Yes (Hospitalization)
  Sender: FDA-Public Use
  Company Number: PHEH2012US001861

PATIENT
  Sex: Male

DRUGS (6)
  1. ZOLOFT [Suspect]
     Dosage: UNK UKN, UNK
  2. VIMPAT [Suspect]
     Dosage: UNK UKN, UNK
  3. SERTRALINE HYDROCHLORIDE [Concomitant]
     Dosage: UNK UKN, UNK
  4. LAMICTAL [Suspect]
     Indication: EPILEPSY
     Dosage: 300 MG, BID
     Route: 048
  5. TEGRETOL-XR [Suspect]
     Dosage: 600 MG IN MORNING AND 400 MG IN EVENING
     Dates: start: 20111101
  6. LAMICTAL [Suspect]
     Dosage: UNK UKN, UNK
     Route: 048

REACTIONS (8)
  - CYANOSIS [None]
  - DIZZINESS [None]
  - ANXIETY [None]
  - MALAISE [None]
  - LEARNING DISORDER [None]
  - VOMITING [None]
  - CONVULSION [None]
  - FALL [None]
